FAERS Safety Report 8962889 (Version 3)
Quarter: 2014Q2

REPORT INFORMATION
  Report Type: Spontaneous
  Country: US (occurrence: US)
  Receive Date: 20121213
  Receipt Date: 20130810
  Transmission Date: 20141212
  Serious: Yes (Hospitalization, Other)
  Sender: FDA-Public Use
  Company Number: US-BAXTER-2012BAX026526

PATIENT
  Sex: Male

DRUGS (2)
  1. DIANEAL LOW CALCIUM [Suspect]
     Indication: PERITONEAL DIALYSIS
     Route: 033
     Dates: start: 20120426
  2. DIANEAL LOW CALCIUM (ULTRABAG) [Suspect]
     Indication: PERITONEAL DIALYSIS
     Route: 033
     Dates: start: 20120426

REACTIONS (8)
  - Diverticulitis [Recovering/Resolving]
  - Anaemia [Unknown]
  - Impaired gastric emptying [Recovered/Resolved]
  - Umbilical hernia [Recovering/Resolving]
  - Fluid overload [Recovering/Resolving]
  - Abdominal pain [Recovered/Resolved]
  - Weight increased [Unknown]
  - Fluid retention [Recovering/Resolving]
